FAERS Safety Report 8220998-3 (Version None)
Quarter: 2012Q1

REPORT INFORMATION
  Report Type: 
  Country: None (occurrence: None)
  Receive Date: 20120320
  Receipt Date: 20120316
  Transmission Date: 20120608
  Serious: Yes (Life-Threatening)
  Sender: FDA-Public Use
  Company Number: JP-SANOFI-AVENTIS-2012SA014121

PATIENT
  Age: 75 Year
  Sex: Male
  Weight: 48 kg

DRUGS (20)
  1. IRBESARTAN [Concomitant]
     Indication: HYPERTENSION
     Route: 048
  2. SANCOBA [Concomitant]
     Dosage: ROUTE: INTRAOSSEOUS INFUSION
  3. FLUOROURACIL [Concomitant]
     Route: 040
     Dates: start: 20120126, end: 20120126
  4. COMESGEN [Concomitant]
     Route: 048
  5. CALCIUM POLYSTYRENE SULFONATE [Concomitant]
     Indication: HYPERKALAEMIA
     Route: 048
  6. LEUCOVORIN CALCIUM [Concomitant]
     Indication: BLADDER CANCER
     Route: 041
     Dates: start: 20120126, end: 20120126
  7. IPD [Concomitant]
     Indication: ASTHMA
     Route: 048
  8. FAMOTIDINE [Concomitant]
     Route: 048
  9. MUCODYNE [Concomitant]
     Indication: ASTHMA
     Route: 048
  10. MONTELUKAST SODIUM [Concomitant]
     Indication: ASTHMA
     Route: 048
  11. OXALIPLATIN [Suspect]
     Indication: BLADDER CANCER
     Route: 041
     Dates: start: 20120126, end: 20120126
  12. FLUOROURACIL [Concomitant]
     Indication: BLADDER CANCER
     Route: 041
     Dates: start: 20120126, end: 20120126
  13. MAGNESIUM OXIDE [Concomitant]
     Indication: CONSTIPATION
     Route: 048
  14. TAMSULOSIN HCL [Concomitant]
     Indication: BENIGN PROSTATIC HYPERPLASIA
     Route: 048
  15. KINEDAK [Concomitant]
     Route: 048
  16. SIMVASTATIN [Concomitant]
     Route: 048
  17. SHOUSAIKOTOU [Concomitant]
     Route: 048
  18. OXALIPLATIN [Suspect]
     Route: 041
     Dates: start: 20120126, end: 20120126
  19. UNIPHYL [Concomitant]
     Indication: ASTHMA
     Route: 048
  20. ZOLPIDEM [Concomitant]
     Indication: INSOMNIA
     Route: 048

REACTIONS (1)
  - CHRONIC OBSTRUCTIVE PULMONARY DISEASE [None]
